FAERS Safety Report 5495054-8 (Version None)
Quarter: 2007Q4

REPORT INFORMATION
  Report Type: 
  Country: None (occurrence: None)
  Receive Date: 20071024
  Receipt Date: 20071010
  Transmission Date: 20080405
  Serious: Yes (Hospitalization)
  Sender: FDA-Public Use
  Company Number: GR-RANBAXY-2007RR-10673

PATIENT

DRUGS (10)
  1. PARACETAMOL TABLETS BP 500MG [Suspect]
     Dosage: 500 MG, UNK
  2. PHYTOMENADIONE [Concomitant]
  3. PIPERACILLIN [Concomitant]
  4. TAZOBACTAM [Concomitant]
  5. OMEPRAZOLE [Concomitant]
  6. CIPROFLOXACIN [Concomitant]
  7. CLINDAMYCIN HCL [Concomitant]
  8. ENOXAPARIN SODIUM [Concomitant]
  9. FOLIC ACID [Concomitant]
  10. VITAMIN B COMPLEX CAP [Concomitant]

REACTIONS (2)
  - HYPERCOAGULATION [None]
  - PERIPHERAL ISCHAEMIA [None]
